FAERS Safety Report 15035939 (Version 3)
Quarter: 2019Q2

REPORT INFORMATION
  Report Type: Spontaneous
  Country: IT (occurrence: IT)
  Receive Date: 20180620
  Receipt Date: 20190426
  Transmission Date: 20190711
  Serious: Yes (Death, Life-Threatening, Hospitalization, Other)
  Sender: FDA-Public Use
  Company Number: PHHY2018IT025079

PATIENT
  Age: 81 Year
  Sex: Male

DRUGS (5)
  1. METFORMIN [Suspect]
     Active Substance: METFORMIN HYDROCHLORIDE
     Indication: TYPE 2 DIABETES MELLITUS
     Dosage: UNK
     Route: 065
  2. BISOPROLOL [Concomitant]
     Active Substance: BISOPROLOL
     Indication: HYPERTENSION
     Dosage: UNK
     Route: 065
  3. LINAGLIPTIN [Suspect]
     Active Substance: LINAGLIPTIN
     Indication: TYPE 2 DIABETES MELLITUS
     Dosage: UNK
     Route: 065
  4. ACARBOSE. [Suspect]
     Active Substance: ACARBOSE
     Indication: TYPE 2 DIABETES MELLITUS
     Dosage: UNK
     Route: 065
  5. NOREPINEPHRINE. [Concomitant]
     Active Substance: NOREPINEPHRINE
     Indication: METABOLIC ACIDOSIS
     Dosage: AT INCREASING DOSES UP TO 1 UG/KG/MIN
     Route: 065

REACTIONS (14)
  - Acute kidney injury [Fatal]
  - Vomiting [Fatal]
  - Hyperkalaemia [Fatal]
  - Cardiac arrest [Fatal]
  - Metabolic acidosis [Fatal]
  - Asthenia [Fatal]
  - Tachycardia [Fatal]
  - Lactic acidosis [Fatal]
  - Haemodynamic instability [Fatal]
  - Unresponsive to stimuli [Fatal]
  - Dyspnoea [Fatal]
  - Hypoxia [Fatal]
  - Hyperlactacidaemia [Fatal]
  - Anuria [Fatal]
